FAERS Safety Report 24969947 (Version 1)
Quarter: 2025Q1

REPORT INFORMATION
  Report Type: Spontaneous
  Country: US (occurrence: None)
  Receive Date: 20250213
  Receipt Date: 20250213
  Transmission Date: 20250409
  Serious: Yes (unspecified)
  Sender: FDA-CTU
  Company Number: None

PATIENT
  Age: 66 Year
  Sex: Female
  Weight: 57.6 kg

DRUGS (23)
  1. EVENITY [Suspect]
     Active Substance: ROMOSOZUMAB-AQQG
     Indication: Osteoporosis
     Dates: start: 20240627, end: 20250101
  2. HYDROCHLOROTHIAZIDE [Concomitant]
     Active Substance: HYDROCHLOROTHIAZIDE
  3. SENTRALINE [Concomitant]
  4. BUSPIRONE [Concomitant]
     Active Substance: BUSPIRONE HYDROCHLORIDE
  5. ATORVASTATIN [Concomitant]
     Active Substance: ATORVASTATIN
  6. ATENOLOL [Concomitant]
     Active Substance: ATENOLOL
  7. APROZOLAN [Concomitant]
  8. FLUTICASONE [Concomitant]
     Active Substance: FLUTICASONE
  9. ESTRADIOL [Concomitant]
     Active Substance: ESTRADIOL
  10. LUCRUSE ELLIPTA [Concomitant]
  11. ALBUTEROL SULFATE [Concomitant]
     Active Substance: ALBUTEROL SULFATE
  12. ASPIRIN [Concomitant]
     Active Substance: ASPIRIN
  13. ZYRTEC [Concomitant]
     Active Substance: CETIRIZINE HYDROCHLORIDE
  14. COENZYME Q10 [Concomitant]
     Active Substance: DIETARY SUPPLEMENT\UBIDECARENONE
  15. FISH OIL [Concomitant]
     Active Substance: FISH OIL
  16. VITAMINS [Concomitant]
     Active Substance: VITAMINS
  17. VITAMIN E [Concomitant]
     Active Substance: .ALPHA.-TOCOPHEROL
  18. VITAMINS NOS [Concomitant]
     Active Substance: VITAMINS
  19. VITAMIN D3 [Concomitant]
     Active Substance: CHOLECALCIFEROL
  20. JWH-018 [Concomitant]
     Active Substance: JWH-018
  21. CALCIUM CARBONATE [Concomitant]
     Active Substance: CALCIUM CARBONATE
  22. VICATIMIN C [Concomitant]
  23. TOPICAL MINOXIDIL [Concomitant]

REACTIONS (2)
  - Deja vu [None]
  - Therapy cessation [None]

NARRATIVE: CASE EVENT DATE: 20240724
